FAERS Safety Report 7982115-4 (Version None)
Quarter: 2011Q4

REPORT INFORMATION
  Report Type: 
  Country: None (occurrence: None)
  Receive Date: 20111214
  Receipt Date: 20111214
  Transmission Date: 20120403
  Serious: No
  Sender: FDA-Public Use
  Company Number: None

PATIENT
  Age: 56 Year
  Sex: Female

DRUGS (7)
  1. ZOMETA [Concomitant]
  2. FENTANYL [Concomitant]
  3. DIAZEPAM [Concomitant]
  4. REVLIMID [Suspect]
     Indication: MULTIPLE MYELOMA
     Dosage: REVLIMID 15MG DAILY X 21D/28D ORALLY
     Route: 048
     Dates: start: 20101222, end: 20110707
  5. METHADONE HCL [Concomitant]
  6. VICODIN [Concomitant]
  7. CYMBALTA [Concomitant]

REACTIONS (3)
  - FATIGUE [None]
  - DRUG INEFFECTIVE [None]
  - NEUROPATHY PERIPHERAL [None]
